FAERS Safety Report 4850043-9 (Version None)
Quarter: 2005Q4

REPORT INFORMATION
  Report Type: 
  Country: None (occurrence: None)
  Receive Date: 20051209
  Receipt Date: 20051201
  Transmission Date: 20060501
  Serious: Yes (Hospitalization, Other)
  Sender: FDA-Public Use
  Company Number: US-ABBOTT-05P-163-0318331-00

PATIENT
  Sex: Female
  Weight: 71.732 kg

DRUGS (8)
  1. SYNTHROID [Suspect]
     Indication: HYPOTHYROIDISM
     Route: 048
     Dates: start: 20051113, end: 20051118
  2. SYNTHROID [Suspect]
     Route: 048
     Dates: start: 20051112, end: 20051112
  3. ASPIRIN [Concomitant]
     Indication: ANKYLOSING SPONDYLITIS
     Route: 048
  4. AMITRIPTYLINE HCL [Concomitant]
     Indication: SCIATICA
     Route: 048
  5. RANITIDINE HYDROCHLORIDE [Concomitant]
     Indication: GASTRITIS
     Route: 048
  6. ALENDRONATE SODIUM [Concomitant]
     Indication: OSTEOPOROSIS
     Route: 048
  7. ACETAMINOPHEN W/ CODEINE [Concomitant]
     Indication: PAIN
     Route: 048
  8. CHLORPHENIRAMINE MALEATE [Concomitant]
     Indication: HYPERSENSITIVITY
     Route: 048
     Dates: start: 20051101

REACTIONS (5)
  - BLOOD PRESSURE INCREASED [None]
  - CHEST PAIN [None]
  - DIZZINESS [None]
  - HYPOAESTHESIA [None]
  - PARAESTHESIA [None]
